FAERS Safety Report 21133254 (Version 1)
Quarter: 2022Q3

REPORT INFORMATION
  Report Type: Spontaneous
  Country: GB (occurrence: GB)
  Receive Date: 20220726
  Receipt Date: 20220726
  Transmission Date: 20221027
  Serious: Yes (Disabling, Other)
  Sender: FDA-Public Use
  Company Number: GB-AMERICAN REGENT INC-2022002121

PATIENT
  Age: 26 Year
  Sex: Female

DRUGS (3)
  1. FERINJECT [Suspect]
     Active Substance: FERRIC CARBOXYMALTOSE
     Indication: Blood iron decreased
     Dosage: 1 GRAM, SINGLE
     Dates: start: 20210521, end: 20210521
  2. MAGNESIUM SULFATE HEPTAHYDRATE [Concomitant]
     Active Substance: MAGNESIUM SULFATE HEPTAHYDRATE
     Indication: Nervous system disorder prophylaxis
     Route: 042
  3. PENICILLIN G [Concomitant]
     Active Substance: PENICILLIN G
     Indication: Amniotic cavity infection
     Dosage: UNK
     Route: 065
     Dates: start: 20210520, end: 20210521

REACTIONS (4)
  - Muscular weakness [Recovering/Resolving]
  - Skin discolouration [Unknown]
  - Circumstance or information capable of leading to medication error [Unknown]
  - Injection site extravasation [Unknown]

NARRATIVE: CASE EVENT DATE: 20210521
